FAERS Safety Report 4912259-2 (Version None)
Quarter: 2006Q1

REPORT INFORMATION
  Report Type: 
  Country: None (occurrence: None)
  Receive Date: 20060215
  Receipt Date: 20051129
  Transmission Date: 20060701
  Serious: No
  Sender: FDA-Public Use
  Company Number: US-GLAXOSMITHKLINE-A0583860A

PATIENT
  Age: 37 Year
  Sex: Female

DRUGS (3)
  1. VALTREX [Suspect]
     Dosage: 500MG TWICE PER DAY
     Route: 048
     Dates: start: 20040101
  2. LEVAQUIN [Concomitant]
     Indication: URINARY TRACT INFECTION
     Dosage: 500MG PER DAY
  3. BECLOMETHASONE DIPROPIONATE [Concomitant]

REACTIONS (4)
  - CONTUSION [None]
  - INFLUENZA [None]
  - PARAESTHESIA [None]
  - STOMACH DISCOMFORT [None]
